FAERS Safety Report 19662945 (Version 1)
Quarter: 2021Q3

REPORT INFORMATION
  Report Type: Spontaneous
  Country: CO (occurrence: CO)
  Receive Date: 20210805
  Receipt Date: 20210805
  Transmission Date: 20211014
  Serious: Yes (Other)
  Sender: FDA-Public Use
  Company Number: CO-PFIZER INC-202100968312

PATIENT
  Sex: Female

DRUGS (1)
  1. REAMPLA [Suspect]
     Active Substance: PALBOCICLIB
     Indication: BREAST CANCER METASTATIC
     Dosage: UNK
     Route: 048
     Dates: start: 2020, end: 202105

REACTIONS (3)
  - Anaemia [Not Recovered/Not Resolved]
  - Haemoglobin decreased [Unknown]
  - Neoplasm progression [Unknown]

NARRATIVE: CASE EVENT DATE: 202105
